FAERS Safety Report 14246575 (Version 1)
Quarter: 2017Q4

REPORT INFORMATION
  Report Type: Report from Study
  Country: US (occurrence: US)
  Receive Date: 20171204
  Receipt Date: 20171204
  Transmission Date: 20180321
  Serious: Yes (Hospitalization)
  Sender: FDA-Public Use
  Company Number: PHHO2017US015991

PATIENT
  Sex: Female
  Weight: 58.9 kg

DRUGS (5)
  1. MERCAPTOPURINE. [Suspect]
     Active Substance: MERCAPTOPURINE
     Indication: ACUTE LYMPHOCYTIC LEUKAEMIA
     Dosage: 75 MG/M2, DAYS 1-28 AND 36-84
     Route: 048
     Dates: start: 20130703, end: 20130829
  2. NELARABINE [Suspect]
     Active Substance: NELARABINE
     Indication: ACUTE LYMPHOCYTIC LEUKAEMIA
     Dosage: 650MG/M2 IV OVER 60 MIN, DAYS 29-33
     Route: 042
     Dates: start: 20130730, end: 20130801
  3. VINCRISTINE SULPHATE [Suspect]
     Active Substance: VINCRISTINE SULFATE
     Indication: ACUTE LYMPHOCYTIC LEUKAEMIA
     Dosage: 1.5MG/M2 IVP OVER 1 MIN, DAYS 1AND 57
     Route: 042
     Dates: start: 20130703, end: 20130826
  4. PREDNISONE. [Suspect]
     Active Substance: PREDNISONE
     Indication: ACUTE LYMPHOCYTIC LEUKAEMIA
     Dosage: UNK
     Route: 065
     Dates: start: 20130826, end: 20130830
  5. METHOTREXATE. [Suspect]
     Active Substance: METHOTREXATE
     Indication: ACUTE LYMPHOCYTIC LEUKAEMIA
     Dosage: 20MG/M2 PO, DAYS 8, 15, 22, 29, 36, 43, 50, 57, 64, 71 AND 78
     Route: 037
     Dates: start: 20130703, end: 20130826

REACTIONS (1)
  - Lipase increased [Recovering/Resolving]

NARRATIVE: CASE EVENT DATE: 20130828
